FAERS Safety Report 9448201 (Version 2)
Quarter: 2014Q4

REPORT INFORMATION
  Report Type: Spontaneous
  Country: FR (occurrence: None)
  Receive Date: 20130806
  Receipt Date: 20141114
  Transmission Date: 20150529
  Serious: Yes (Hospitalization, Other)
  Sender: FDA-Public Use
  Company Number: 2013MPI00458

PATIENT
  Age: 35 Year
  Sex: Female
  Weight: 78 kg

DRUGS (1)
  1. BRENTUXIMAB VEDOTIN (BRENTUXIMAB VEDOTIN) INJECTION [Suspect]
     Active Substance: BRENTUXIMAB VEDOTIN
     Indication: HODGKIN^S DISEASE REFRACTORY
     Dosage: 1.8 MG/KG, Q21D
     Route: 042
     Dates: start: 20120202, end: 20121123

REACTIONS (10)
  - Sinusitis [None]
  - Conjunctivitis viral [None]
  - Polyneuropathy [None]
  - Paraesthesia [None]
  - Back pain [None]
  - Lip and/or oral cavity cancer [None]
  - Areflexia [None]
  - Cholestasis [None]
  - Peripheral sensorimotor neuropathy [None]
  - Conjunctival hyperaemia [None]

NARRATIVE: CASE EVENT DATE: 201206
